FAERS Safety Report 8350990-X (Version None)
Quarter: 2012Q2

REPORT INFORMATION
  Report Type: 
  Country: None (occurrence: None)
  Receive Date: 20120510
  Receipt Date: 20120426
  Transmission Date: 20120825
  Serious: Yes (Other)
  Sender: FDA-Public Use
  Company Number: CHPA2012US010010

PATIENT
  Age: 65 Year
  Sex: Female

DRUGS (1)
  1. BENEFIBER PLUS HEART HEALTH [Suspect]
     Indication: NUTRITIONAL SUPPORT
     Dosage: 2 TSP, QD
     Route: 048
     Dates: start: 20110101

REACTIONS (3)
  - EXPIRED DRUG ADMINISTERED [None]
  - RENAL DISORDER [None]
  - PROTEIN URINE [None]
